FAERS Safety Report 5344326-6 (Version None)
Quarter: 2007Q2

REPORT INFORMATION
  Report Type: 
  Country: None (occurrence: None)
  Receive Date: 20070604
  Receipt Date: 20070524
  Transmission Date: 20071010
  Serious: Yes (Death)
  Sender: FDA-Public Use
  Company Number: US-SHR-US-2007-006387

PATIENT
  Age: 51 Year
  Sex: Female

DRUGS (21)
  1. MAGNEVIST [Suspect]
     Dosage: 60 ML, 1 DOSE
     Route: 042
     Dates: start: 20040106, end: 20040106
  2. MAGNEVIST [Suspect]
     Dosage: 60 ML, 1 DOSE
     Route: 042
     Dates: start: 20050625, end: 20050625
  3. MAGNEVIST [Suspect]
     Dosage: 10 ML, 1 DOSE
     Route: 042
     Dates: start: 20060122, end: 20060122
  4. MAGNEVIST [Suspect]
     Dosage: 10 ML, 1 DOSE
     Route: 042
     Dates: start: 20060121, end: 20060121
  5. TYLENOL [Concomitant]
  6. FOSAMAX [Concomitant]
  7. NEXIUM [Concomitant]
  8. FOLATE SODIUM [Concomitant]
  9. ISORDIL [Concomitant]
  10. LEVOTHYROXINE SODIUM [Concomitant]
  11. LOTRIMIN [Concomitant]
  12. METHADONE HCL [Concomitant]
  13. METOPROLOL SUCCINATE [Concomitant]
  14. POLYVITAMIN [Concomitant]
  15. NEPHROCAPS [Concomitant]
  16. THIAMINE [Concomitant]
  17. ARANESP [Concomitant]
  18. RENAGEL [Concomitant]
  19. IMDUR [Concomitant]
  20. PROTONIX [Concomitant]
  21. LOPRESSOR [Concomitant]

REACTIONS (1)
  - NEPHROGENIC FIBROSING DERMOPATHY [None]
